FAERS Safety Report 11295240 (Version 2)
Quarter: 2015Q3

REPORT INFORMATION
  Report Type: Spontaneous
  Country: JP (occurrence: JP)
  Receive Date: 20150723
  Receipt Date: 20150805
  Transmission Date: 20151125
  Serious: Yes (Other)
  Sender: FDA-Public Use
  Company Number: PHJP2015JP010686

PATIENT
  Age: 67 Year
  Sex: Male

DRUGS (5)
  1. FLUTAMIDE. [Concomitant]
     Active Substance: FLUTAMIDE
     Indication: DISSEMINATED INTRAVASCULAR COAGULATION
     Route: 065
  2. BICALUTAMIDE. [Concomitant]
     Active Substance: BICALUTAMIDE
     Indication: DISSEMINATED INTRAVASCULAR COAGULATION
     Route: 065
  3. ZOLEDRONATE [Suspect]
     Active Substance: ZOLEDRONIC ACID
     Indication: PROSTATE CANCER
     Route: 065
  4. DOCETAXEL. [Concomitant]
     Active Substance: DOCETAXEL
     Indication: DISSEMINATED INTRAVASCULAR COAGULATION
     Route: 065
  5. ENZALUTAMIDE [Concomitant]
     Active Substance: ENZALUTAMIDE
     Indication: DISSEMINATED INTRAVASCULAR COAGULATION
     Route: 065

REACTIONS (1)
  - Drug-induced liver injury [Unknown]
